FAERS Safety Report 9461664 (Version 1)
Quarter: 2013Q3

REPORT INFORMATION
  Report Type: Spontaneous
  Country: US (occurrence: US)
  Receive Date: 20130816
  Receipt Date: 20130816
  Transmission Date: 20140515
  Serious: No
  Sender: FDA-Public Use
  Company Number: US-009507513-1307USA007596

PATIENT
  Age: 23 Year
  Sex: Female

DRUGS (3)
  1. RIBAVIRIN [Suspect]
     Dosage: UNK
     Route: 048
     Dates: start: 20110827, end: 20111112
  2. PEGINTERFERON ALFA-2B [Suspect]
     Dosage: UNK
     Route: 065
     Dates: start: 20110827, end: 20111112
  3. OMEGA-3 [Concomitant]
     Indication: PREGNANCY
     Dosage: 200 MG, QD
     Dates: start: 20120418

REACTIONS (1)
  - Maternal exposure before pregnancy [Recovered/Resolved]
